FAERS Safety Report 15776666 (Version 3)
Quarter: 2019Q2

REPORT INFORMATION
  Report Type: Spontaneous
  Country: US (occurrence: US)
  Receive Date: 20181231
  Receipt Date: 20190618
  Transmission Date: 20190711
  Serious: No
  Sender: FDA-Public Use
  Company Number: US-PFIZER INC-2018532856

PATIENT
  Age: 11 Year
  Sex: Female

DRUGS (4)
  1. GENOTROPIN [Suspect]
     Active Substance: SOMATROPIN
     Dosage: 1 DF, ALTERNATE DAY (1.0 ONE DAY AND 1.2 NEXT DAY ALTERNATING INJECTION)
  2. GENOTROPIN [Suspect]
     Active Substance: SOMATROPIN
     Dosage: 1.3 MG, UNK
     Dates: start: 20180530
  3. GENOTROPIN [Suspect]
     Active Substance: SOMATROPIN
     Indication: GROWTH HORMONE DEFICIENCY
     Dosage: 1.2 MG, DAILY
  4. GENOTROPIN [Suspect]
     Active Substance: SOMATROPIN
     Dosage: 1.2 DF, ALTERNATE DAY (1.0 ONE DAY AND 1.2 NEXT DAY ALTERNATING INJECTION)

REACTIONS (4)
  - Product prescribing error [Unknown]
  - Insulin-like growth factor increased [Unknown]
  - Device use issue [Unknown]
  - Product dose omission [Unknown]

NARRATIVE: CASE EVENT DATE: 20171011
